FAERS Safety Report 6544026-0 (Version None)
Quarter: 2010Q1

REPORT INFORMATION
  Report Type: 
  Country: None (occurrence: None)
  Receive Date: 20100120
  Receipt Date: 20100114
  Transmission Date: 20100710
  Serious: Yes (Other)
  Sender: FDA-Public Use
  Company Number: JP-PFIZER INC-2010006917

PATIENT

DRUGS (2)
  1. GABAPEN [Suspect]
     Dosage: UNK
     Route: 048
     Dates: start: 20091226
  2. PHENOBARBITAL TAB [Concomitant]
     Dates: end: 20091225

REACTIONS (2)
  - AGRANULOCYTOSIS [None]
  - PLATELET COUNT DECREASED [None]
